FAERS Safety Report 7654441-X (Version None)
Quarter: 2011Q3

REPORT INFORMATION
  Report Type: 
  Country: None (occurrence: None)
  Receive Date: 20110803
  Receipt Date: 20110725
  Transmission Date: 20111222
  Serious: Yes (Other)
  Sender: FDA-Public Use
  Company Number: NL-ASTRAZENECA-2011SE44330

PATIENT
  Age: 68 Year
  Sex: Male

DRUGS (2)
  1. CYCLOSPORINE [Concomitant]
  2. ROSUVASTATINE [Suspect]
     Route: 048

REACTIONS (2)
  - LIVER DISORDER [None]
  - CHEST PAIN [None]
